FAERS Safety Report 7249307-3 (Version None)
Quarter: 2011Q1

REPORT INFORMATION
  Report Type: 
  Country: None (occurrence: None)
  Receive Date: 20110110
  Receipt Date: 20110110
  Transmission Date: 20110831
  Serious: No
  Sender: FDA-Public Use
  Company Number: None

PATIENT
  Sex: Female
  Weight: 64.4108 kg

DRUGS (1)
  1. ALCOHOL PREP SWABS 70% ISAPROPYL ALCOHOL CVS/PHARMACY [Suspect]
     Indication: THERAPEUTIC SKIN CARE TOPICAL
     Dosage: 100 COUNT BOX TOP
     Route: 061
     Dates: start: 20110106

REACTIONS (4)
  - APPLICATION SITE SWELLING [None]
  - APPLICATION SITE PRURITUS [None]
  - SCAB [None]
  - PRODUCT QUALITY ISSUE [None]
